FAERS Safety Report 17969918 (Version 2)
Quarter: 2025Q3

REPORT INFORMATION
  Report Type: Spontaneous
  Country: EU (occurrence: EU)
  Receive Date: 20200701
  Receipt Date: 20250805
  Transmission Date: 20251021
  Serious: Yes (Hospitalization, Other)
  Sender: GALPHARM INTERNATIONAL
  Company Number: None

PATIENT
  Age: 73 Year
  Sex: Female

DRUGS (12)
  1. IBUPROFEN [Suspect]
     Active Substance: IBUPROFEN
     Indication: Osteoarthritis
     Route: 065
  2. IBUPROFEN [Suspect]
     Active Substance: IBUPROFEN
     Route: 065
  3. HYDROCHLOROTHIAZIDE [Suspect]
     Active Substance: HYDROCHLOROTHIAZIDE
     Indication: Hypertension
     Route: 065
  4. HYDROCHLOROTHIAZIDE [Suspect]
     Active Substance: HYDROCHLOROTHIAZIDE
     Route: 065
  5. LOSARTAN [Concomitant]
     Active Substance: LOSARTAN
     Indication: Hypertension
     Route: 065
  6. LOSARTAN [Concomitant]
     Active Substance: LOSARTAN
     Route: 065
  7. NIMESULIDE [Concomitant]
     Active Substance: NIMESULIDE
     Indication: Osteoarthritis
     Route: 065
  8. NIMESULIDE [Concomitant]
     Active Substance: NIMESULIDE
     Route: 065
  9. PAROXETINE [Concomitant]
     Active Substance: PAROXETINE
     Indication: Product used for unknown indication
     Route: 065
  10. PAROXETINE [Concomitant]
     Active Substance: PAROXETINE
     Route: 065
  11. AMISULPRIDE [Concomitant]
     Active Substance: AMISULPRIDE
     Indication: Product used for unknown indication
     Route: 065
  12. AMISULPRIDE [Concomitant]
     Active Substance: AMISULPRIDE
     Route: 065

REACTIONS (12)
  - Renal failure [Recovered/Resolved]
  - Tubulointerstitial nephritis [Recovered/Resolved]
  - Normochromic normocytic anaemia [Unknown]
  - Leukoencephalopathy [Unknown]
  - Hypoxic-ischaemic encephalopathy [Unknown]
  - Decreased appetite [Unknown]
  - Proteinuria [Unknown]
  - Nausea [Unknown]
  - Morning sickness [Unknown]
  - Asthenia [Unknown]
  - Weight decreased [Unknown]
  - Somnolence [Unknown]
